FAERS Safety Report 6877137-0 (Version None)
Quarter: 2010Q3

REPORT INFORMATION
  Report Type: 
  Country: None (occurrence: None)
  Receive Date: 20100727
  Receipt Date: 20100712
  Transmission Date: 20110219
  Serious: Yes (Other)
  Sender: FDA-Public Use
  Company Number: US-ROCHE-715176

PATIENT
  Sex: Female
  Weight: 77.1 kg

DRUGS (5)
  1. BONIVA [Suspect]
     Indication: OSTEOPOROSIS
     Route: 048
     Dates: start: 20070101
  2. SIMVASTATIN [Concomitant]
  3. ZANTAC [Concomitant]
  4. XANAX [Concomitant]
  5. VICODIN [Concomitant]

REACTIONS (2)
  - HAND FRACTURE [None]
  - TABLET ISSUE [None]
